FAERS Safety Report 15408997 (Version 1)
Quarter: 2018Q3

REPORT INFORMATION
  Report Type: Spontaneous
  Country: US (occurrence: US)
  Receive Date: 20180920
  Receipt Date: 20180920
  Transmission Date: 20181010
  Serious: Yes (Hospitalization, Other)
  Sender: FDA-Public Use
  Company Number: US-OTSUKA-2018_021841

PATIENT
  Sex: Male

DRUGS (7)
  1. ABILIFY [Suspect]
     Active Substance: ARIPIPRAZOLE
     Indication: MAJOR DEPRESSION
  2. ABILIFY [Suspect]
     Active Substance: ARIPIPRAZOLE
     Indication: SOCIAL ANXIETY DISORDER
  3. ABILIFY [Suspect]
     Active Substance: ARIPIPRAZOLE
     Indication: BIPOLAR DISORDER
     Dosage: 15 MG, QD
     Route: 065
     Dates: start: 200610, end: 201501
  4. ABILIFY [Suspect]
     Active Substance: ARIPIPRAZOLE
     Indication: PSYCHOTIC DISORDER
  5. ABILIFY [Suspect]
     Active Substance: ARIPIPRAZOLE
     Indication: EATING DISORDER
  6. ABILIFY [Suspect]
     Active Substance: ARIPIPRAZOLE
     Indication: INSOMNIA
  7. ABILIFY [Suspect]
     Active Substance: ARIPIPRAZOLE
     Indication: POST-TRAUMATIC STRESS DISORDER

REACTIONS (14)
  - Obsessive-compulsive disorder [Unknown]
  - Gambling disorder [Unknown]
  - Compulsive shopping [Unknown]
  - Economic problem [Unknown]
  - Product use in unapproved indication [Unknown]
  - Emotional distress [Unknown]
  - Suicide attempt [Unknown]
  - Anhedonia [Unknown]
  - Pain [Unknown]
  - Mental disorder [Unknown]
  - Injury [Unknown]
  - Compulsive sexual behaviour [Unknown]
  - Anxiety [Unknown]
  - Suicidal ideation [Unknown]
